FAERS Safety Report 9295007 (Version 1)
Quarter: 2013Q2

REPORT INFORMATION
  Report Type: Spontaneous
  Country: US (occurrence: None)
  Receive Date: 20130516
  Receipt Date: 20130516
  Transmission Date: 20140414
  Serious: Yes (Life-Threatening)
  Sender: FDA-Public Use
  Company Number: None

PATIENT
  Age: 63 Year
  Sex: Female
  Weight: 81.65 kg

DRUGS (1)
  1. VENOFER [Suspect]
     Indication: ANAEMIA
     Route: 041
     Dates: start: 20130502, end: 20130502

REACTIONS (6)
  - Pallor [None]
  - Hyperhidrosis [None]
  - Blood pressure decreased [None]
  - Dizziness [None]
  - Feeling cold [None]
  - Paraesthesia [None]
